FAERS Safety Report 16613421 (Version 1)
Quarter: 2019Q3

REPORT INFORMATION
  Report Type: Spontaneous
  Country: DE (occurrence: DE)
  Receive Date: 20190723
  Receipt Date: 20190723
  Transmission Date: 20191004
  Serious: Yes (Death, Hospitalization)
  Sender: FDA-Public Use
  Company Number: DE-ASTRAZENECA-2019SF00147

PATIENT
  Age: 77 Year
  Sex: Male
  Weight: 72 kg

DRUGS (12)
  1. ACTRAPHANE [Suspect]
     Active Substance: INSULIN HUMAN
     Dosage: 30/70 FLEXPEN 100 IU/ML (INSULIN (HUMAN)/INSULIN-ISOPHANE (HUMAN)
     Route: 058
  2. METAMIZOLE [Concomitant]
     Active Substance: METAMIZOLE
     Dosage: 30 DROPS, 30 DROPS IF NEEDED, DROPS
     Route: 048
  3. FORXIGA [Suspect]
     Active Substance: DAPAGLIFLOZIN
     Dosage: 10 MG, 1-0-0-0, TABLET
     Route: 048
  4. PANTOPRAZOL [Concomitant]
     Active Substance: PANTOPRAZOLE SODIUM
     Dosage: 20 MG, 1-0-0-0, TABLET
     Route: 048
  5. METOPROLOL. [Concomitant]
     Active Substance: METOPROLOL
     Dosage: 47.5 MG, 1-0-1-0, RETARD-TABLETT
     Route: 048
  6. BERODUAL [Concomitant]
     Active Substance: FENOTEROL HYDROBROMIDE\IPRATROPIUM BROMIDE
     Dosage: NK MG, 2 STROKES IF NEEDED, DOSAGE AEROSOL
     Route: 055
  7. FOSTER [Concomitant]
     Active Substance: BECLOMETHASONE\FORMOTEROL
     Dosage: FOSTER 100/6 MICROGRAMS
     Route: 055
  8. SPIRIVA [Concomitant]
     Active Substance: TIOTROPIUM BROMIDE MONOHYDRATE
     Dosage: 2.5 ???G, 1-0-1-0, DOSAGE AEROSOL
     Route: 055
  9. TORASEMIDE [Concomitant]
     Active Substance: TORSEMIDE
     Dosage: 10 MG, 1-1-0-0, TABLET
     Route: 048
  10. DAXAS [Concomitant]
     Active Substance: ROFLUMILAST
     Dosage: 500 ???G, 0-0-0.5-0, TABLET
     Route: 048
  11. VELMETIA [Suspect]
     Active Substance: METFORMIN\SITAGLIPTIN
     Dosage: 50|1000 MG, 1-0-1-0, TABLET
     Route: 048
  12. TILIDIN [Concomitant]
     Active Substance: NALOXONE HYDROCHLORIDE\TILIDINE HYDROCHLORIDE
     Dosage: 50|4 MG, 0-0-0-1, RETARD-TABLET
     Route: 048

REACTIONS (6)
  - Dehydration [Unknown]
  - Disturbance in attention [Unknown]
  - Hypoglycaemia [Unknown]
  - General physical health deterioration [Unknown]
  - Diabetic coma [Unknown]
  - Product administration error [Unknown]
